FAERS Safety Report 16849588 (Version 1)
Quarter: 2019Q3

REPORT INFORMATION
  Report Type: Spontaneous
  Country: US (occurrence: US)
  Receive Date: 20190802
  Receipt Date: 20190802
  Transmission Date: 20191005
  Serious: No
  Sender: FDA-Public Use
  Company Number: None

PATIENT

DRUGS (3)
  1. INTEGRILIN [Suspect]
     Active Substance: EPTIFIBATIDE
     Route: 042
  2. EPTIFIBATIDE. [Suspect]
     Active Substance: EPTIFIBATIDE
     Route: 042
  3. EPTIFIBATIDE. [Suspect]
     Active Substance: EPTIFIBATIDE
     Route: 042

REACTIONS (6)
  - Nausea [None]
  - Caesarean section [None]
  - Wrong product administered [None]
  - Blood pressure decreased [None]
  - Product appearance confusion [None]
  - Exposure during pregnancy [None]
